FAERS Safety Report 7324038-X (Version None)
Quarter: 2011Q1

REPORT INFORMATION
  Report Type: 
  Country: None (occurrence: None)
  Receive Date: 20110301
  Receipt Date: 20100928
  Transmission Date: 20110831
  Serious: Yes (Hospitalization, Other)
  Sender: FDA-Public Use
  Company Number: US-BAYER-201015561NA

PATIENT
  Sex: Female
  Weight: 61.224 kg

DRUGS (24)
  1. SEASONALE [Concomitant]
  2. YASMIN [Suspect]
     Indication: ORAL CONTRACEPTION
     Dosage: UNK
     Route: 048
     Dates: start: 20020101, end: 20040601
  3. AMBIEN [Concomitant]
     Indication: SLEEP DISORDER THERAPY
     Dosage: 5 MG, HS
     Dates: start: 20050101, end: 20070101
  4. NEXIUM [Concomitant]
     Indication: ABDOMINAL PAIN UPPER
     Dosage: 40 MG, UNK
     Dates: start: 20060101, end: 20090101
  5. UNCODEABLE ^UNCLASSIFIABLE^ [Concomitant]
     Indication: HEADACHE
     Dosage: 650 MG, PRN
  6. IMODIUM [Concomitant]
  7. YASMIN [Suspect]
     Dosage: UNK
     Dates: start: 20050101, end: 20060101
  8. YAZ [Suspect]
     Indication: ORAL CONTRACEPTION
     Dosage: UNK
     Dates: start: 20061201, end: 20090101
  9. CEFUROXIME [Concomitant]
     Dosage: 250 MG, BID
  10. ASPIRIN [Concomitant]
  11. NASONEX [Concomitant]
     Indication: RHINITIS
     Dosage: 50 MG, UNK
  12. NEURONTIN [Concomitant]
     Indication: HEADACHE
  13. PHENERGAN [Concomitant]
  14. YAZ [Suspect]
     Dosage: UNK
  15. AMBIEN [Concomitant]
     Dosage: 10 MG, UNK
  16. NASONEX [Concomitant]
     Dosage: 0.05 MG, UNK
  17. GAS X [Concomitant]
  18. UNCODEABLE ^UNCLASSIFIABLE^ [Concomitant]
  19. CEFUROXIME AXETIL [Concomitant]
     Indication: PRODUCT USED FOR UNKNOWN INDICATION
     Dosage: 250 MG, UNK
  20. CHANTIX [Concomitant]
  21. HYDROCODONE/ACETAMINOPHEN [Concomitant]
     Indication: PRODUCT USED FOR UNKNOWN INDICATION
  22. METOCLOPRAMIDE HCL [Concomitant]
     Dosage: 10 MG, UNK
  23. UNCODEABLE ^UNCLASSIFIABLE^ [Concomitant]
  24. PEPCID AC [Concomitant]

REACTIONS (11)
  - NAUSEA [None]
  - ABDOMINAL PAIN UPPER [None]
  - PROCEDURAL PAIN [None]
  - MEDICAL DIET [None]
  - GASTROOESOPHAGEAL REFLUX DISEASE [None]
  - CHOLECYSTITIS CHRONIC [None]
  - CHEST PAIN [None]
  - FATIGUE [None]
  - HEADACHE [None]
  - VOMITING [None]
  - BILIARY COLIC [None]
